FAERS Safety Report 5496201-4 (Version None)
Quarter: 2007Q4

REPORT INFORMATION
  Report Type: 
  Country: None (occurrence: None)
  Receive Date: 20071018
  Receipt Date: 20070502
  Transmission Date: 20080405
  Serious: Yes (Other)
  Sender: FDA-Public Use
  Company Number: 2007036329

PATIENT
  Age: 56 Year
  Sex: Female

DRUGS (3)
  1. NEURONTIN [Suspect]
     Indication: ANXIETY
     Dosage: (300 MG)
     Dates: start: 20031217
  2. NEURONTIN [Suspect]
     Indication: DEPRESSION
     Dosage: (300 MG)
     Dates: start: 20031217
  3. NEURONTIN [Suspect]
     Indication: FALL
     Dosage: (300 MG)
     Dates: start: 20031217

REACTIONS (4)
  - AMNESIA [None]
  - HEADACHE [None]
  - PARANOIA [None]
  - SUICIDAL IDEATION [None]
